FAERS Safety Report 5881698-8 (Version None)
Quarter: 2008Q3

REPORT INFORMATION
  Report Type: 
  Country: None (occurrence: None)
  Receive Date: 20080912
  Receipt Date: 20080707
  Transmission Date: 20090109
  Serious: No
  Sender: FDA-Public Use
  Company Number: US-ABBOTT-08P-163-0461094-00

PATIENT
  Sex: Female

DRUGS (7)
  1. HUMIRA [Suspect]
     Indication: CROHN'S DISEASE
     Route: 058
     Dates: start: 20071101
  2. CHOLESTYRAMINE [Concomitant]
     Indication: CROHN'S DISEASE
     Route: 058
  3. MESALAMINE [Concomitant]
     Indication: CROHN'S DISEASE
     Route: 048
  4. CITALOPRAM HYDROBROMIDE [Concomitant]
     Indication: ANXIETY
     Dosage: 1/2 PILL EVERYDAY
     Route: 048
  5. CITALOPRAM HYDROBROMIDE [Concomitant]
     Indication: PROPHYLAXIS
  6. CLONAZEPAM [Concomitant]
     Indication: INSOMNIA
     Route: 048
  7. CYANOCOBALAMIN-TANNIN COMPLEX [Concomitant]
     Indication: VITAMIN B12 DECREASED
     Route: 050

REACTIONS (1)
  - INJECTION SITE IRRITATION [None]
